FAERS Safety Report 10072186 (Version 2)
Quarter: 2014Q2

REPORT INFORMATION
  Report Type: Spontaneous
  Country: US (occurrence: US)
  Receive Date: 20140411
  Receipt Date: 20140508
  Transmission Date: 20141212
  Serious: Yes (Other)
  Sender: FDA-Public Use
  Company Number: US-SA-2014SA045688

PATIENT
  Age: 28 Year
  Sex: Female
  Weight: 70.89 kg

DRUGS (24)
  1. FABRAZYME [Suspect]
     Indication: FABRY^S DISEASE
     Route: 042
     Dates: start: 20120612
  2. FABRAZYME [Suspect]
     Indication: FABRY^S DISEASE
     Route: 042
     Dates: start: 20120612
  3. FABRAZYME [Suspect]
     Indication: FABRY^S DISEASE
     Route: 042
     Dates: start: 20120612
  4. FABRAZYME [Suspect]
     Indication: FABRY^S DISEASE
     Route: 042
     Dates: start: 20120612
  5. PROVIGIL [Concomitant]
  6. ASENAPINE MALEATE [Concomitant]
     Route: 060
  7. DIPHENHYDRAMINE [Concomitant]
     Dosage: 100 UNITS/ML
  8. HEPARIN [Concomitant]
     Dosage: 100 UNITS/ML
  9. SALINE [Concomitant]
  10. SODIUM CHLORIDE [Concomitant]
     Dosage: 0.9 % STRENGTH
  11. EPIPEN [Concomitant]
  12. LIDOCAINE [Concomitant]
  13. MORPHINE [Concomitant]
     Dosage: 30 MG/30 ML
  14. REGLAN [Concomitant]
  15. BACLOFEN [Concomitant]
  16. ATIVAN [Concomitant]
  17. HYDROCHLOROTHIAZIDE [Concomitant]
     Dosage: DOSE: 12.5; UNITS NOT PROVIDED
  18. SINGULAIR [Concomitant]
  19. ADVAIR [Concomitant]
     Dosage: 250/50 DISKUS
  20. ZYRTEC [Concomitant]
  21. ELAVIL [Concomitant]
  22. NAPROXEN SODIUM [Concomitant]
  23. RHINOCORT [Concomitant]
     Dosage: NASAL INHALER
     Route: 055
  24. MORPHINE SULFATE [Concomitant]

REACTIONS (1)
  - Urinary tract infection [Unknown]
